FAERS Safety Report 19861078 (Version 1)
Quarter: 2021Q3

REPORT INFORMATION
  Report Type: Spontaneous
  Country: US (occurrence: US)
  Receive Date: 20210921
  Receipt Date: 20210921
  Transmission Date: 20211014
  Serious: Yes (Hospitalization)
  Sender: FDA-Public Use
  Company Number: None

PATIENT
  Sex: Female

DRUGS (10)
  1. FOLIC ACID. [Concomitant]
     Active Substance: FOLIC ACID
  2. HUMIRA [Suspect]
     Active Substance: ADALIMUMAB
     Indication: RHEUMATOID ARTHRITIS
     Dosage: ?          OTHER FREQUENCY:QOWK;?
     Route: 058
     Dates: start: 20180724
  3. DILTIAZEM. [Concomitant]
     Active Substance: DILTIAZEM
  4. LOVASTATIN. [Concomitant]
     Active Substance: LOVASTATIN
  5. WIXELA INHUB [Concomitant]
     Active Substance: FLUTICASONE PROPIONATE\SALMETEROL XINAFOATE
  6. ALBUTEROL. [Concomitant]
     Active Substance: ALBUTEROL
  7. DIL?XR [Concomitant]
  8. FLECAINIDE [Concomitant]
     Active Substance: FLECAINIDE
  9. METHOREXATE [Concomitant]
     Active Substance: METHOTREXATE SODIUM
  10. SYNTHROID [Concomitant]
     Active Substance: LEVOTHYROXINE SODIUM

REACTIONS (3)
  - Atrial fibrillation [None]
  - Therapy interrupted [None]
  - Infection [None]
